FAERS Safety Report 5624458-5 (Version None)
Quarter: 2008Q1

REPORT INFORMATION
  Report Type: 
  Country: None (occurrence: None)
  Receive Date: 20080213
  Receipt Date: 20080130
  Transmission Date: 20080703
  Serious: Yes (Hospitalization)
  Sender: FDA-Public Use
  Company Number: FR-AMGEN-UK245469

PATIENT
  Sex: Male

DRUGS (2)
  1. NEULASTA [Suspect]
     Indication: CHEMOTHERAPY
     Route: 058
     Dates: start: 20070816, end: 20070816
  2. DENOSUMAB - BLINDED [Suspect]
     Indication: PROSTATE CANCER
     Route: 058
     Dates: start: 20060914

REACTIONS (1)
  - LUNG INFECTION [None]
